FAERS Safety Report 17499234 (Version 1)
Quarter: 2020Q1

REPORT INFORMATION
  Report Type: Spontaneous
  Country: FR (occurrence: FR)
  Receive Date: 20200305
  Receipt Date: 20200305
  Transmission Date: 20200409
  Serious: Yes (Death)
  Sender: FDA-Public Use
  Company Number: FR-TEVA-2020-FR-1193075

PATIENT
  Age: 87 Year
  Sex: Male
  Weight: 72 kg

DRUGS (10)
  1. BISOPROLOL (HEMIFUMARATE DE) [Suspect]
     Active Substance: BISOPROLOL FUMARATE
     Indication: MYOCARDIAL ISCHAEMIA
     Dosage: 5MG
     Route: 048
     Dates: end: 20200207
  2. PERINDOPRIL [Concomitant]
     Active Substance: PERINDOPRIL
  3. ESIDREX [Concomitant]
     Active Substance: HYDROCHLOROTHIAZIDE
  4. LEPONEX 100 MG, COMPRIME SECABLE [Suspect]
     Active Substance: CLOZAPINE
     Indication: WRONG PATIENT RECEIVED PRODUCT
     Dosage: 2 DOSAGE FORMS
     Route: 048
     Dates: start: 20200207, end: 20200208
  5. LOXAPINE BASE [Suspect]
     Active Substance: LOXAPINE
     Indication: PRODUCT USED FOR UNKNOWN INDICATION
     Route: 048
     Dates: end: 20200208
  6. PARACETAMOL [Suspect]
     Active Substance: ACETAMINOPHEN
     Indication: PAIN
     Route: 065
     Dates: end: 20200208
  7. SOLIAN 400 MG, COMPRIME PELLICULE SECABLE [Suspect]
     Active Substance: AMISULPRIDE
     Indication: WRONG PATIENT RECEIVED PRODUCT
     Dosage: 3 DOSAGE FORMS
     Route: 048
     Dates: start: 20200207, end: 20200208
  8. LEPTICUR 10 MG, COMPRIME [Suspect]
     Active Substance: TROPATEPINE HYDROCHLORIDE
     Indication: WRONG PATIENT RECEIVED PRODUCT
     Dosage: 1 DOSAGE FORM
     Route: 048
     Dates: start: 20200207, end: 20200208
  9. VESICARE [Concomitant]
     Active Substance: SOLIFENACIN SUCCINATE
  10. ELIQUIS [Concomitant]
     Active Substance: APIXABAN

REACTIONS (4)
  - Pneumonia aspiration [Fatal]
  - Coma [Fatal]
  - Wrong patient received product [Fatal]
  - Rhabdomyolysis [Fatal]

NARRATIVE: CASE EVENT DATE: 20200207
